FAERS Safety Report 13882566 (Version 2)
Quarter: 2017Q4

REPORT INFORMATION
  Report Type: Spontaneous
  Country: US (occurrence: US)
  Receive Date: 20170818
  Receipt Date: 20171019
  Transmission Date: 20180320
  Serious: Yes (Hospitalization)
  Sender: FDA-Public Use
  Company Number: US-SA-2017SA151512

PATIENT
  Age: 74 Year
  Sex: Male
  Weight: 105.23 kg

DRUGS (16)
  1. PRALUENT [Suspect]
     Active Substance: ALIROCUMAB
     Indication: HYPERLIPIDAEMIA
     Route: 058
     Dates: start: 20170708, end: 20170816
  2. FLOMAX [Concomitant]
     Active Substance: TAMSULOSIN HYDROCHLORIDE
     Route: 065
  3. METOPROLOL. [Concomitant]
     Active Substance: METOPROLOL
     Dosage: STRENGTH: 50 MG
     Route: 065
  4. CELECOXIB. [Concomitant]
     Active Substance: CELECOXIB
     Dosage: STRENGTH: 200MG
     Route: 065
  5. POTASSIUM [Concomitant]
     Active Substance: POTASSIUM
     Route: 065
  6. ALIROCUMAB PREFILLED PEN [Suspect]
     Active Substance: ALIROCUMAB
     Indication: HYPERLIPIDAEMIA
     Dates: start: 20170708, end: 20170816
  7. NOVOLOG [Concomitant]
     Active Substance: INSULIN ASPART
     Route: 065
  8. LOSARTAN. [Concomitant]
     Active Substance: LOSARTAN
     Dosage: STRENGTH: 100 MG
     Route: 065
  9. GABAPENTIN. [Concomitant]
     Active Substance: GABAPENTIN
     Dosage: STRENGTH: 400 MG
     Route: 065
  10. PLAVIX [Concomitant]
     Active Substance: CLOPIDOGREL BISULFATE
     Dosage: STRENGTH: 75 MG
     Route: 065
  11. METFORMIN [Concomitant]
     Active Substance: METFORMIN HYDROCHLORIDE
     Dosage: STRENGTH: 1000MG
     Route: 065
  12. COENZYME Q10 [Concomitant]
     Active Substance: UBIDECARENONE
     Route: 065
  13. CHONDROITIN W/GLUCOSAMINE [Concomitant]
     Route: 065
  14. MAGNESIUM [Concomitant]
     Active Substance: MAGNESIUM
     Route: 065
  15. ASA [Concomitant]
     Active Substance: ASPIRIN
     Dosage: STRENGTH: 81 MG
     Route: 065
  16. VICTOZA [Concomitant]
     Active Substance: LIRAGLUTIDE
     Route: 065

REACTIONS (1)
  - Cerebrovascular accident [Not Recovered/Not Resolved]

NARRATIVE: CASE EVENT DATE: 20170803
